FAERS Safety Report 6568587-0 (Version None)
Quarter: 2010Q1

REPORT INFORMATION
  Report Type: 
  Country: None (occurrence: None)
  Receive Date: 20100203
  Receipt Date: 20100127
  Transmission Date: 20100710
  Serious: Yes (Other)
  Sender: FDA-Public Use
  Company Number: CHPA2010NZ02084

PATIENT
  Sex: Female

DRUGS (1)
  1. SCOPOLAMINE [Suspect]
     Dosage: UNK, UNK
     Route: 062

REACTIONS (3)
  - APPLICATION SITE RASH [None]
  - NAUSEA [None]
  - PALPITATIONS [None]
